FAERS Safety Report 9157627 (Version 2)
Quarter: 2013Q2

REPORT INFORMATION
  Report Type: Spontaneous
  Country: US (occurrence: US)
  Receive Date: 20130311
  Receipt Date: 20130423
  Transmission Date: 20140414
  Serious: Yes (Hospitalization, Other)
  Sender: FDA-Public Use
  Company Number: US-RB-050809-13

PATIENT
  Age: 41 Year
  Sex: Male

DRUGS (6)
  1. SUBOXONE FILM [Suspect]
     Indication: DRUG DEPENDENCE
     Dosage: SUBOXONE FILM: INTERMITTENTLY
     Route: 060
     Dates: start: 2010, end: 201208
  2. SUBOXONE FILM [Suspect]
     Dosage: SUBOXONE FILM
     Route: 060
     Dates: start: 201208, end: 201212
  3. SUBOXONE FILM [Suspect]
     Dosage: SUBOXONE FILM; INTERMITTENTLY
     Route: 060
     Dates: start: 201301
  4. SUBOXONE TABLET [Suspect]
     Indication: DRUG DEPENDENCE
     Dosage: INTERMITTENTLY
     Route: 060
     Dates: start: 2010, end: 201208
  5. SUBOXONE TABLET [Suspect]
     Dosage: INTERMITTENTLY
     Route: 060
     Dates: start: 201301
  6. ALEVE [Concomitant]
     Indication: PAIN
     Dosage: 1 TABLET DAILY
     Route: 065
     Dates: start: 2009

REACTIONS (8)
  - Substance abuse [Not Recovered/Not Resolved]
  - Somnolence [Not Recovered/Not Resolved]
  - Sluggishness [Not Recovered/Not Resolved]
  - Feeling of body temperature change [Not Recovered/Not Resolved]
  - Rhinorrhoea [Not Recovered/Not Resolved]
  - Pain [Not Recovered/Not Resolved]
  - Pain in extremity [Not Recovered/Not Resolved]
  - Pneumonia [Recovered/Resolved]
